FAERS Safety Report 23222018 (Version 1)
Quarter: 2023Q4

REPORT INFORMATION
  Report Type: Report from Study
  Country: IT (occurrence: IT)
  Receive Date: 20231123
  Receipt Date: 20231123
  Transmission Date: 20240110
  Serious: Yes (Other)
  Sender: FDA-Public Use
  Company Number: None

PATIENT
  Age: 55 Year
  Sex: Female

DRUGS (4)
  1. CITALOPRAM [Suspect]
     Active Substance: CITALOPRAM HYDROBROMIDE
     Indication: Drug abuse
     Dosage: FORM: UNKNOWN?DURATION: 1 DAY? DECHALLENGE: N/A? RECHALLENGE: N/A
     Route: 048
     Dates: start: 20221211, end: 20221211
  2. CITALOPRAM [Suspect]
     Active Substance: CITALOPRAM HYDROBROMIDE
     Indication: Drug abuse
     Dosage: UNIT 5 DOSAGE FORM
     Route: 048
  3. LIME [Suspect]
     Active Substance: LIME (CALCIUM OXIDE)\LIME (CITRUS)
     Indication: Drug abuse
     Dosage: DURATION: 1 DAY? DECHALLENGE: N/A? RECHALLENGE: N/A
     Route: 048
     Dates: start: 20221211, end: 20221211
  4. LIME [Suspect]
     Active Substance: LIME (CALCIUM OXIDE)\LIME (CITRUS)
     Indication: Drug abuse
     Route: 048

REACTIONS (2)
  - Sopor [Recovering/Resolving]
  - Drug abuse [Recovering/Resolving]

NARRATIVE: CASE EVENT DATE: 20221211
